FAERS Safety Report 20373898 (Version 1)
Quarter: 2022Q1

REPORT INFORMATION
  Report Type: Spontaneous
  Country: US (occurrence: None)
  Receive Date: 20220124
  Receipt Date: 20220124
  Transmission Date: 20220423
  Serious: No
  Sender: FDA-Public Use
  Company Number: None

PATIENT
  Age: 73 Year
  Sex: Female

DRUGS (1)
  1. SPRYCEL [Suspect]
     Active Substance: DASATINIB
     Dosage: FREQUENCY : DAILY;?
     Route: 048
     Dates: start: 20190418

REACTIONS (5)
  - Chills [None]
  - Pyrexia [None]
  - Migraine [None]
  - Nausea [None]
  - Pleural effusion [None]

NARRATIVE: CASE EVENT DATE: 20220124
